FAERS Safety Report 7570026-8 (Version None)
Quarter: 2011Q2

REPORT INFORMATION
  Report Type: 
  Country: None (occurrence: None)
  Receive Date: 20110624
  Receipt Date: 20110617
  Transmission Date: 20111010
  Serious: No
  Sender: FDA-Public Use
  Company Number: CA-MUTUAL PHARMACEUTICAL COMPANY, INC.-MTDZ20110002

PATIENT
  Age: 74 Year
  Sex: Male

DRUGS (1)
  1. METRONIDAZOLE [Suspect]
     Indication: OSTEOMYELITIS
     Route: 065

REACTIONS (3)
  - TOXIC ENCEPHALOPATHY [None]
  - ATAXIA [None]
  - NEUROPATHY PERIPHERAL [None]
